FAERS Safety Report 14119405 (Version 1)
Quarter: 2017Q4

REPORT INFORMATION
  Report Type: Spontaneous
  Country: US (occurrence: None)
  Receive Date: 20171024
  Receipt Date: 20171024
  Transmission Date: 20180321
  Serious: Yes (Hospitalization)
  Sender: FDA-Public Use
  Company Number: None

PATIENT
  Age: 40 Year
  Sex: Female
  Weight: 65.8 kg

DRUGS (1)
  1. MEMANTINE HYDROCHLORIDE. [Suspect]
     Active Substance: MEMANTINE HYDROCHLORIDE
     Dates: end: 20170926

REACTIONS (7)
  - Seizure [None]
  - Treatment noncompliance [None]
  - Hyperglycaemia [None]
  - Loss of consciousness [None]
  - Metastases to central nervous system [None]
  - Somnolence [None]
  - Dyskinesia [None]

NARRATIVE: CASE EVENT DATE: 20171002
